FAERS Safety Report 6388533-2 (Version None)
Quarter: 2009Q4

REPORT INFORMATION
  Report Type: 
  Country: None (occurrence: None)
  Receive Date: 20091001
  Receipt Date: 20091001
  Transmission Date: 20100525
  Serious: Yes (Hospitalization)
  Sender: FDA-Public Use
  Company Number: None

PATIENT
  Age: 31 Year
  Sex: Female
  Weight: 90.7194 kg

DRUGS (1)
  1. YAZ [Suspect]
     Dates: start: 20090201, end: 20090330

REACTIONS (3)
  - CHOLELITHIASIS [None]
  - KIDNEY INFECTION [None]
  - NEPHROLITHIASIS [None]
